FAERS Safety Report 6958070-2 (Version None)
Quarter: 2010Q3

REPORT INFORMATION
  Report Type: 
  Country: None (occurrence: None)
  Receive Date: 20100830
  Receipt Date: 20100830
  Transmission Date: 20110219
  Serious: Yes (Other)
  Sender: FDA-Public Use
  Company Number: None

PATIENT
  Age: 32 Year
  Sex: Female
  Weight: 104.3273 kg

DRUGS (1)
  1. TERBINAFINE HCL [Suspect]
     Indication: NAIL DISCOLOURATION
     Dosage: 1 TABLET 1 TIME DAY PO
     Route: 048
     Dates: start: 20100804, end: 20100808

REACTIONS (6)
  - CHOKING SENSATION [None]
  - GASTRIC PH INCREASED [None]
  - HYPOPHAGIA [None]
  - OESOPHAGEAL PAIN [None]
  - OLIGODIPSIA [None]
  - RETCHING [None]
